FAERS Safety Report 14850145 (Version 2)
Quarter: 2018Q2

REPORT INFORMATION
  Report Type: Spontaneous
  Country: US (occurrence: US)
  Receive Date: 20180505
  Receipt Date: 20180517
  Transmission Date: 20180711
  Serious: Yes (Life-Threatening, Hospitalization, Other)
  Sender: FDA-Public Use
  Company Number: US-GLENMARK PHARMACEUTICALS-2018GMK034981

PATIENT
  Age: 56 Year
  Sex: Male

DRUGS (3)
  1. FLUCONAZOLE. [Suspect]
     Active Substance: FLUCONAZOLE
     Indication: FUNGAL INFECTION
     Dosage: UNK, CREAM
     Route: 065
  2. NALTREXONE [Concomitant]
     Active Substance: NALTREXONE
     Indication: AUTOIMMUNE DISORDER
     Dosage: 4.5 MG, OD
     Route: 065
  3. KETOCONAZOLE. [Suspect]
     Active Substance: KETOCONAZOLE
     Indication: FUNGAL INFECTION
     Dosage: 200 MG, BID
     Route: 048

REACTIONS (21)
  - Tachycardia [Recovering/Resolving]
  - Dyspnoea [Unknown]
  - Dehydration [Unknown]
  - Tremor [Recovering/Resolving]
  - Headache [Unknown]
  - Anaphylactic reaction [Unknown]
  - Asthenia [Unknown]
  - Adverse drug reaction [Recovering/Resolving]
  - Skin erosion [Recovering/Resolving]
  - Flushing [Recovering/Resolving]
  - Alcohol intolerance [Unknown]
  - Hypotension [Unknown]
  - Angioedema [Recovering/Resolving]
  - Dizziness [Unknown]
  - Food allergy [Recovering/Resolving]
  - Weight decreased [Recovering/Resolving]
  - Nausea [Unknown]
  - Tinnitus [Unknown]
  - Multiple chemical sensitivity [Recovering/Resolving]
  - Burning sensation [Recovering/Resolving]
  - Paraesthesia [Recovering/Resolving]
